FAERS Safety Report 8457361-6 (Version None)
Quarter: 2012Q2

REPORT INFORMATION
  Report Type: 
  Country: None (occurrence: None)
  Receive Date: 20120621
  Receipt Date: 20120618
  Transmission Date: 20120825
  Serious: Yes (Life-Threatening, Hospitalization)
  Sender: FDA-Public Use
  Company Number: DE-B.I. PHARMACEUTICALS,INC./RIDGEFIELD-2012-DE-01099DE

PATIENT
  Sex: Male
  Weight: 72 kg

DRUGS (3)
  1. CONCOR [Concomitant]
     Indication: ATRIAL FIBRILLATION
     Dosage: 1 ANZ
     Dates: start: 20100419
  2. PRADAXA [Suspect]
     Indication: ATRIAL FIBRILLATION
     Dosage: 220 MG
     Dates: start: 20100419, end: 20120326
  3. METHYLPREDNISOLONE [Concomitant]
     Indication: POLYMYALGIA RHEUMATICA
     Dosage: 1 ANZ

REACTIONS (1)
  - PULMONARY EMBOLISM [None]
